FAERS Safety Report 8724641 (Version 3)
Quarter: 2013Q1

REPORT INFORMATION
  Report Type: Spontaneous
  Country: US (occurrence: US)
  Receive Date: 20120815
  Receipt Date: 20130103
  Transmission Date: 20140127
  Serious: Yes (Other)
  Sender: FDA-Public Use
  Company Number: US-FRI-1000037704

PATIENT
  Age: 49 Year
  Sex: Male

DRUGS (15)
  1. VIIBRYD [Suspect]
     Indication: DEPRESSION
     Dosage: 10 MG
     Route: 048
     Dates: start: 20120803, end: 20120809
  2. VIIBRYD [Suspect]
     Indication: TACHYPHRENIA
     Dosage: 20 MG
     Route: 048
     Dates: start: 20120810, end: 20120816
  3. VIIBRYD [Suspect]
     Indication: CRYING
  4. VIIBRYD [Suspect]
     Indication: DEPRESSION
     Dosage: 40 MG
     Route: 048
     Dates: start: 20120817, end: 20120819
  5. LISINOPRIL [Concomitant]
     Indication: HYPERTENSION
  6. GLUCOPHAGE [Concomitant]
     Indication: DIABETES MELLITUS
  7. FLONASE [Concomitant]
     Indication: HYPERSENSITIVITY
  8. SINGULAIR [Concomitant]
     Indication: HYPERSENSITIVITY
  9. NEXIUM [Concomitant]
     Indication: GASTROOESOPHAGEAL REFLUX DISEASE
  10. ALPRAZOLAM [Concomitant]
  11. OXYCODONE [Concomitant]
  12. ZETIA [Concomitant]
     Indication: BLOOD CHOLESTEROL INCREASED
  13. NEURONTIN [Concomitant]
  14. ZANAFLEX [Concomitant]
  15. SOMA [Concomitant]

REACTIONS (11)
  - Rectal haemorrhage [Recovered/Resolved]
  - Suicidal ideation [Recovered/Resolved]
  - Intentional self-injury [Recovered/Resolved]
  - Feeling abnormal [Recovered/Resolved]
  - Crying [Not Recovered/Not Resolved]
  - Anger [Recovered/Resolved]
  - Aggression [Recovered/Resolved]
  - Confusional state [Recovered/Resolved]
  - Agitation [Recovered/Resolved]
  - Affect lability [Not Recovered/Not Resolved]
  - Anxiety [Recovered/Resolved]
